FAERS Safety Report 15881988 (Version 4)
Quarter: 2019Q2

REPORT INFORMATION
  Report Type: Report from Study
  Country: US (occurrence: US)
  Receive Date: 20190128
  Receipt Date: 20190411
  Transmission Date: 20190711
  Serious: Yes (Other)
  Sender: FDA-Public Use
  Company Number: US-PFIZER INC-2018515160

PATIENT
  Age: 55 Year
  Sex: Female

DRUGS (2)
  1. SUTENT [Suspect]
     Active Substance: SUNITINIB MALATE
     Indication: RENAL CELL CARCINOMA
     Dosage: 50 MG, CYCLIC (DAILY 4 WEEKS ON 2 WEEKS OFF)
     Route: 048
     Dates: start: 20181130
  2. SUTENT [Suspect]
     Active Substance: SUNITINIB MALATE
     Dosage: 50 MG, CYCLIC (DAILY 4 WEEKS ON 2 WEEKS OFF)
     Route: 048
     Dates: start: 20181203

REACTIONS (18)
  - Fatigue [Unknown]
  - Feeling hot [Unknown]
  - Abscess [Unknown]
  - Nausea [Unknown]
  - Pain in extremity [Recovering/Resolving]
  - Restlessness [Unknown]
  - Weight increased [Unknown]
  - Pain [Unknown]
  - Staphylococcus test positive [Unknown]
  - Diarrhoea [Unknown]
  - Headache [Not Recovered/Not Resolved]
  - Abdominal pain [Unknown]
  - Red blood cell count decreased [Unknown]
  - Gastrointestinal disorder [Recovering/Resolving]
  - Mouth haemorrhage [Unknown]
  - Dry skin [Unknown]
  - Stomatitis [Unknown]
  - Back pain [Recovering/Resolving]

NARRATIVE: CASE EVENT DATE: 201812
